FAERS Safety Report 15935182 (Version 4)
Quarter: 2019Q1

REPORT INFORMATION
  Report Type: Spontaneous
  Country: NL (occurrence: NL)
  Receive Date: 20190207
  Receipt Date: 20190211
  Transmission Date: 20190417
  Serious: Yes (Death, Hospitalization)
  Sender: FDA-Public Use
  Company Number: PHHY2019NL027659

PATIENT
  Age: 55 Year
  Sex: Male

DRUGS (3)
  1. DEXAMETHASONE. [Suspect]
     Active Substance: DEXAMETHASONE
     Indication: BRAIN NEOPLASM
     Dosage: 4 MG, BID
     Route: 065
  2. PREDNISOLONE. [Suspect]
     Active Substance: PREDNISOLONE
     Indication: BRAIN NEOPLASM
     Dosage: 26.7 MG, BID (CUMULATIVE DOSE OF 2.96 G)
     Route: 065
  3. DEXAMETHASONE. [Suspect]
     Active Substance: DEXAMETHASONE
     Dosage: TREATED FOR 6 WEEKS WITH ALTERNATING DOSES OF DEXAMETHASONE
     Route: 065

REACTIONS (6)
  - Mucosal haemorrhage [Unknown]
  - Acute respiratory failure [Fatal]
  - Cardiac arrest [Fatal]
  - Pneumocystis jirovecii pneumonia [Fatal]
  - Strongyloidiasis [Fatal]
  - Product use in unapproved indication [Unknown]
